FAERS Safety Report 6891025-5 (Version None)
Quarter: 2010Q3

REPORT INFORMATION
  Report Type: 
  Country: None (occurrence: None)
  Receive Date: 20100731
  Receipt Date: 20090511
  Transmission Date: 20110219
  Serious: No
  Sender: FDA-Public Use
  Company Number: CA-PFIZER INC-2009193355

PATIENT
  Sex: Male
  Weight: 76.19 kg

DRUGS (1)
  1. LIPITOR [Suspect]
     Indication: BLOOD CHOLESTEROL
     Dosage: 10 MG, 1X/DAY
     Dates: start: 20000101, end: 20020101

REACTIONS (2)
  - MUSCLE SPASMS [None]
  - MYALGIA [None]
